FAERS Safety Report 22184868 (Version 2)
Quarter: 2023Q2

REPORT INFORMATION
  Report Type: Spontaneous
  Country: US (occurrence: US)
  Receive Date: 20230407
  Receipt Date: 20230411
  Transmission Date: 20230721
  Serious: No
  Sender: FDA-Public Use
  Company Number: US-002147023-NVSC2023US079993

PATIENT
  Sex: Female

DRUGS (1)
  1. BIMATOPROST [Suspect]
     Active Substance: BIMATOPROST
     Indication: Product used for unknown indication
     Dosage: 5 ML, (1 DROP PER EYELID PER EVENING)
     Route: 047

REACTIONS (3)
  - Ocular hyperaemia [Unknown]
  - Swelling of eyelid [Unknown]
  - Erythema of eyelid [Unknown]
